FAERS Safety Report 4846449-4 (Version None)
Quarter: 2005Q4

REPORT INFORMATION
  Report Type: 
  Country: None (occurrence: None)
  Receive Date: 20051206
  Receipt Date: 20051125
  Transmission Date: 20060501
  Serious: Yes (Other)
  Sender: FDA-Public Use
  Company Number: DE-JNJFOC-20051004131

PATIENT
  Age: 66 Year
  Sex: Male

DRUGS (5)
  1. REMICADE [Suspect]
     Indication: ANKYLOSING SPONDYLITIS
     Dosage: 7 INFUSIONS
     Route: 042
  2. PREDNISOLONE [Concomitant]
     Indication: ANKYLOSING SPONDYLITIS
     Route: 048
  3. NORVASC [Concomitant]
     Route: 048
  4. ACETYLSALICYLATE [Concomitant]
     Indication: THROMBOSIS
     Route: 048
  5. ALLOPURINOL [Concomitant]
     Route: 048

REACTIONS (2)
  - INFUSION RELATED REACTION [None]
  - RAYNAUD'S PHENOMENON [None]
